FAERS Safety Report 11326866 (Version 2)
Quarter: 2015Q4

REPORT INFORMATION
  Report Type: Spontaneous
  Country: FR (occurrence: FR)
  Receive Date: 20150731
  Receipt Date: 20151016
  Transmission Date: 20160304
  Serious: Yes (Hospitalization, Other)
  Sender: FDA-Public Use
  Company Number: FR-BRISTOL-MYERS SQUIBB COMPANY-BMS-2015-049812

PATIENT
  Age: 89 Year
  Sex: Female
  Weight: 40 kg

DRUGS (10)
  1. ELIQUIS [Suspect]
     Active Substance: APIXABAN
     Indication: ARRHYTHMIA
  2. COUMADINE [Suspect]
     Active Substance: WARFARIN SODIUM
     Indication: ARRHYTHMIA
     Dosage: 1 DF, QD 3 TO 4 MG
     Route: 048
     Dates: end: 20150703
  3. CALCIPARINE [Concomitant]
     Active Substance: HEPARIN CALCIUM
     Indication: ARRHYTHMIA
     Dosage: UNK
     Route: 058
     Dates: start: 20150701, end: 20150703
  4. CALCIPARINE [Concomitant]
     Active Substance: HEPARIN CALCIUM
     Dosage: UNK
     Route: 058
     Dates: start: 20150713, end: 20150716
  5. KEPPRA [Concomitant]
     Active Substance: LEVETIRACETAM
     Indication: PRODUCT USED FOR UNKNOWN INDICATION
     Dosage: UNK
     Route: 065
     Dates: end: 20150624
  6. CALCIPARINE [Concomitant]
     Active Substance: HEPARIN CALCIUM
     Dosage: 0.2 ML, BID
     Route: 058
     Dates: start: 20150717, end: 20150721
  7. ELIQUIS [Suspect]
     Active Substance: APIXABAN
     Indication: CEREBROVASCULAR ACCIDENT PROPHYLAXIS
     Dosage: 2.5 MG, QD
     Route: 065
     Dates: start: 20150710, end: 20150713
  8. CALCIPARINE [Concomitant]
     Active Substance: HEPARIN CALCIUM
     Dosage: UNK
     Route: 058
     Dates: start: 20150709, end: 20150710
  9. TRIFLUCAN [Suspect]
     Active Substance: FLUCONAZOLE
     Indication: OROPHARYNGITIS FUNGAL
     Dosage: 50 MG, QD
     Route: 048
     Dates: start: 20150628, end: 20150710
  10. TRIFLUCAN [Suspect]
     Active Substance: FLUCONAZOLE
     Dosage: 100 MG, QD
     Route: 065
     Dates: start: 20150713, end: 20150722

REACTIONS (3)
  - Off label use [Unknown]
  - International normalised ratio increased [Recovered/Resolved]
  - Creatinine renal clearance decreased [Unknown]

NARRATIVE: CASE EVENT DATE: 20150713
